FAERS Safety Report 19638615 (Version 1)
Quarter: 2021Q3

REPORT INFORMATION
  Report Type: Spontaneous
  Country: US (occurrence: US)
  Receive Date: 20210730
  Receipt Date: 20210730
  Transmission Date: 20211014
  Serious: No
  Sender: FDA-Public Use
  Company Number: US-DENTSPLY PHARMACEUTICAL-2020SCDP000355

PATIENT
  Age: 23 Year
  Sex: Female

DRUGS (1)
  1. LIDOCAINE. [Suspect]
     Active Substance: LIDOCAINE
     Indication: SPINAL ANAESTHESIA
     Dosage: LOCAL PRESERVATIVE FREE LIDOCAINE

REACTIONS (2)
  - Maternal exposure during delivery [Unknown]
  - Drug hypersensitivity [Unknown]
